FAERS Safety Report 8540516-X (Version None)
Quarter: 2012Q3

REPORT INFORMATION
  Report Type: 
  Country: None (occurrence: None)
  Receive Date: 20120726
  Receipt Date: 20110805
  Transmission Date: 20120928
  Serious: No
  Sender: FDA-Public Use
  Company Number: US-ASTRAZENECA-2011SE47088

PATIENT
  Age: 47 Year
  Sex: Male
  Weight: 81.6 kg

DRUGS (2)
  1. PRISTIQ [Concomitant]
  2. SEROQUEL XR [Suspect]
     Indication: MAJOR DEPRESSION
     Route: 048

REACTIONS (5)
  - TACHYPHRENIA [None]
  - COLD SWEAT [None]
  - INSOMNIA [None]
  - VOMITING [None]
  - DRUG DOSE OMISSION [None]
